FAERS Safety Report 14206249 (Version 1)
Quarter: 2017Q4

REPORT INFORMATION
  Report Type: Spontaneous
  Country: US (occurrence: US)
  Receive Date: 20171120
  Receipt Date: 20171120
  Transmission Date: 20180321
  Serious: Yes (Other)
  Sender: FDA-Public Use
  Company Number: US-AKORN PHARMACEUTICALS-2017AKN01244

PATIENT
  Sex: Male
  Weight: 122.45 kg

DRUGS (4)
  1. PRAVASTATIN. [Concomitant]
     Active Substance: PRAVASTATIN
  2. TRICOR [Concomitant]
     Active Substance: FENOFIBRATE
  3. MYORISAN [Suspect]
     Active Substance: ISOTRETINOIN
     Indication: ACNE
     Dosage: 40 MG, 2X/DAY
     Route: 048
     Dates: start: 20170619, end: 20171013
  4. CLARAVIS [Suspect]
     Active Substance: ISOTRETINOIN
     Indication: ACNE
     Dosage: 40 MG, 2X/DAY
     Route: 048
     Dates: start: 20170720, end: 2017

REACTIONS (4)
  - Anxiety [Unknown]
  - Mood altered [Unknown]
  - Disturbance in attention [Unknown]
  - Headache [Unknown]

NARRATIVE: CASE EVENT DATE: 2017
